FAERS Safety Report 5856663-7 (Version None)
Quarter: 2008Q3

REPORT INFORMATION
  Report Type: 
  Country: None (occurrence: None)
  Receive Date: 20080825
  Receipt Date: 20080814
  Transmission Date: 20090109
  Serious: Yes (Other)
  Sender: FDA-Public Use
  Company Number: BR-PFIZER INC-2007071690

PATIENT
  Sex: Female

DRUGS (3)
  1. CHANTIX [Suspect]
     Indication: SMOKING CESSATION THERAPY
     Route: 048
     Dates: start: 20070727, end: 20071001
  2. OMEPRAZOLE [Concomitant]
     Route: 048
  3. GLYCERIN [Concomitant]

REACTIONS (11)
  - ABDOMINAL PAIN UPPER [None]
  - ACCIDENT [None]
  - BLOOD PRESSURE DECREASED [None]
  - DYSPNOEA [None]
  - EMPHYSEMA [None]
  - FEELING COLD [None]
  - HUMERUS FRACTURE [None]
  - NERVOUSNESS [None]
  - SOMNOLENCE [None]
  - UNEVALUABLE EVENT [None]
  - WEIGHT INCREASED [None]
